FAERS Safety Report 8458998-0 (Version None)
Quarter: 2012Q2

REPORT INFORMATION
  Report Type: 
  Country: None (occurrence: None)
  Receive Date: 20120615
  Receipt Date: 20120531
  Transmission Date: 20120825
  Serious: Yes (Death)
  Sender: FDA-Public Use
  Company Number: JP-2012-14817

PATIENT
  Age: 80 Year
  Sex: Female

DRUGS (1)
  1. SAMSCA [Suspect]
     Indication: CARDIAC FAILURE
     Dosage: 15 MG MILLIGRAM(S), DAILY DOSE, ORAL
     Route: 048
     Dates: end: 20120301

REACTIONS (3)
  - PNEUMONIA [None]
  - CONDITION AGGRAVATED [None]
  - BRONCHITIS [None]
